FAERS Safety Report 5376917-0 (Version None)
Quarter: 2007Q3

REPORT INFORMATION
  Report Type: 
  Country: None (occurrence: None)
  Receive Date: 20070703
  Receipt Date: 20070625
  Transmission Date: 20080115
  Serious: Yes (Hospitalization)
  Sender: FDA-Public Use
  Company Number: US-ELI_LILLY_AND_COMPANY-US200703006707

PATIENT
  Age: 53 Year
  Sex: Female
  Weight: 60 kg

DRUGS (10)
  1. LEXAPRO [Concomitant]
     Dosage: 10 MG, DAILY (1/D)
  2. BACLOFEN [Concomitant]
  3. AMBIEN [Concomitant]
     Dosage: 6.25 MG, DAILY (1/D)
  4. VICODIN [Concomitant]
     Dosage: UNK, AS NEEDED
  5. PREDNISONE TAB [Concomitant]
     Dosage: 20 MG, UNK
  6. COMPAZINE [Concomitant]
     Dosage: 10 MG, EVERY 6 HRS
  7. MEGACE [Concomitant]
     Dosage: 400 MG, DAILY (1/D)
  8. SUDAFED 12 HOUR [Concomitant]
     Dosage: UNK, AS NEEDED
  9. SENNA [Concomitant]
  10. GEMZAR [Suspect]
     Indication: NON-SMALL CELL LUNG CANCER STAGE IV
     Dosage: 1000 MG/M2, UNK
     Route: 042
     Dates: start: 20070315, end: 20070322

REACTIONS (2)
  - MALIGNANT NEOPLASM PROGRESSION [None]
  - RHABDOMYOLYSIS [None]
